FAERS Safety Report 16370057 (Version 1)
Quarter: 2019Q2

REPORT INFORMATION
  Report Type: Spontaneous
  Country: US (occurrence: US)
  Receive Date: 20190530
  Receipt Date: 20190530
  Transmission Date: 20190711
  Serious: Yes (Other)
  Sender: FDA-Public Use
  Company Number: US-PFIZER INC-2019226197

PATIENT
  Age: 49 Year
  Sex: Female
  Weight: 84 kg

DRUGS (15)
  1. LEVOXYL [Suspect]
     Active Substance: LEVOTHYROXINE SODIUM
     Indication: AUTOIMMUNE THYROIDITIS
     Dosage: 150 UG, 1X/DAY (IN THE MORNING)
     Dates: start: 20181212, end: 201901
  2. LEVOTHYROXINE SODIUM. [Suspect]
     Active Substance: LEVOTHYROXINE SODIUM
     Indication: AUTOIMMUNE THYROIDITIS
     Dosage: 150 UG, 1X/DAY (IN THE MORNING)
     Dates: start: 201901, end: 20190219
  3. LEVOTHYROXINE SODIUM. [Suspect]
     Active Substance: LEVOTHYROXINE SODIUM
     Dosage: 125 UG, 1X/DAY (IN THE MORNING)
     Dates: start: 20190220, end: 20190423
  4. LEVOTHYROXINE SODIUM. [Suspect]
     Active Substance: LEVOTHYROXINE SODIUM
     Dosage: 75 UG, 1X/DAY (IN THE MORNING)
     Dates: start: 20190424
  5. VITAMIN B [Concomitant]
     Active Substance: VITAMIN B
     Dosage: UNK
  6. FISH OIL [Concomitant]
     Active Substance: FISH OIL
     Dosage: UNK
  7. LIOTHYRONINE SODIUM. [Suspect]
     Active Substance: LIOTHYRONINE SODIUM
     Indication: AUTOIMMUNE THYROIDITIS
     Dosage: 10 UG, 1X/DAY (IN THE MORNING)
     Route: 048
     Dates: start: 20181212, end: 20190219
  8. LIOTHYRONINE SODIUM. [Suspect]
     Active Substance: LIOTHYRONINE SODIUM
     Dosage: 15 UG, 1X/DAY (IN THE AFTERNOON)
     Route: 048
     Dates: start: 20190220, end: 20190423
  9. CALCIUM [Concomitant]
     Active Substance: CALCIUM
     Dosage: UNK
  10. PROBIOTIC [BIFIDOBACTERIUM BIFIDUM;BIFIDOBACTERIUM LACTIS;BIFIDOBACTER [Concomitant]
     Dosage: UNK
  11. ZYRTEC [Concomitant]
     Active Substance: CETIRIZINE HYDROCHLORIDE
     Dosage: UNK
  12. LIOTHYRONINE SODIUM. [Suspect]
     Active Substance: LIOTHYRONINE SODIUM
     Dosage: 10 UG, 1X/DAY (IN THE AFTERNOON)
     Route: 048
     Dates: start: 20190424, end: 201904
  13. LIOTHYRONINE SODIUM. [Suspect]
     Active Substance: LIOTHYRONINE SODIUM
     Indication: AUTOIMMUNE THYROIDITIS
     Dosage: 25 UG, 1X/DAY (IN THE MORNING)
     Route: 048
     Dates: start: 20190424, end: 201904
  14. LIOTHYRONINE SODIUM. [Suspect]
     Active Substance: LIOTHYRONINE SODIUM
     Dosage: 5 UG, 1X/DAY (IN THE AFTERNOON)
     Route: 048
     Dates: start: 20181212, end: 20190423
  15. VITAMIN D [COLECALCIFEROL] [Concomitant]
     Active Substance: CHOLECALCIFEROL
     Dosage: UNK

REACTIONS (11)
  - Urticaria [Unknown]
  - Flushing [Unknown]
  - Burning sensation [Unknown]
  - Anaphylactic reaction [Unknown]
  - Throat tightness [Unknown]
  - Swollen tongue [Unknown]
  - Oropharyngeal pain [Unknown]
  - Pruritus [Unknown]
  - Dissociation [Unknown]
  - Speech disorder [Unknown]
  - Drug ineffective [Unknown]

NARRATIVE: CASE EVENT DATE: 201904
